FAERS Safety Report 14319884 (Version 1)
Quarter: 2017Q4

REPORT INFORMATION
  Report Type: Spontaneous
  Country: US (occurrence: US)
  Receive Date: 20171222
  Receipt Date: 20171222
  Transmission Date: 20180321
  Serious: Yes (Death, Other)
  Sender: FDA-Public Use
  Company Number: US-TEVA-2017-US-835223

PATIENT
  Age: 55 Year
  Sex: Male

DRUGS (3)
  1. FOLIC ACID. [Concomitant]
     Active Substance: FOLIC ACID
     Route: 065
  2. METHOTREXATE. [Suspect]
     Active Substance: METHOTREXATE
     Indication: B-CELL LYMPHOMA
     Dosage: 8 G/M2
     Route: 042
  3. FOLIC ACID. [Concomitant]
     Active Substance: FOLIC ACID
     Route: 065

REACTIONS (2)
  - Septic shock [Fatal]
  - Acute kidney injury [Unknown]
